FAERS Safety Report 7000659 (Version 5)
Quarter: 2014Q3

REPORT INFORMATION
  Report Type: Report from Study
  Country: FR (occurrence: FR)
  Receive Date: 20090522
  Receipt Date: 20140905
  Transmission Date: 20150326
  Serious: Yes (Hospitalization)
  Sender: FDA-Public Use
  Company Number: FR-PFIZER INC-2009211452

PATIENT
  Age: 60 Year
  Sex: Female
  Weight: 65 kg

DRUGS (24)
  1. PEGVISOMANT [Suspect]
     Active Substance: PEGVISOMANT
     Dosage: 10 MG, DAILY
     Route: 058
  2. TEMERIT [Concomitant]
     Active Substance: NEBIVOLOL
     Indication: HYPERTENSION
     Dosage: UNK
     Dates: start: 20090502
  3. ESTRADIOL. [Concomitant]
     Active Substance: ESTRADIOL
     Indication: BLOOD LUTEINISING HORMONE DECREASED
  4. PROGESTERONE. [Concomitant]
     Active Substance: PROGESTERONE
     Indication: BLOOD LUTEINISING HORMONE DECREASED
  5. NOREPINEPHRINE [Concomitant]
     Active Substance: NOREPINEPHRINE\NOREPINEPHRINE BITARTRATE
     Indication: RESPIRATORY DISORDER
     Dosage: UNK
     Dates: start: 20090326, end: 20090403
  6. VASTAREL [Concomitant]
     Active Substance: TRIMETAZIDINE DIHYDROCHLORIDE
     Dosage: UNK
     Dates: start: 19990301, end: 20090502
  7. LEVOTHYROX [Concomitant]
     Active Substance: LEVOTHYROXINE
     Indication: BLOOD THYROID STIMULATING HORMONE DECREASED
     Dosage: UNK
     Dates: start: 19991208
  8. LIPANTHYL [Concomitant]
     Active Substance: FENOFIBRATE
     Indication: LIPID METABOLISM DISORDER
     Dosage: UNK
     Dates: start: 20041028, end: 20090407
  9. KARDEGIC [Concomitant]
     Active Substance: ASPIRIN LYSINE
     Dosage: UNK
     Dates: start: 20061010
  10. LODOZ [Concomitant]
     Active Substance: BISOPROLOL FUMARATE\HYDROCHLOROTHIAZIDE
     Indication: HYPERTENSION
     Dosage: UNK
     Route: 048
     Dates: start: 20040507, end: 20090407
  11. PARACETAMOL [Concomitant]
     Active Substance: ACETAMINOPHEN
     Indication: ARTHRALGIA
     Dosage: UNK
     Dates: start: 20031129
  12. DOBUTAMINE [Concomitant]
     Active Substance: DOBUTAMINE\DOBUTAMINE HYDROCHLORIDE
     Indication: RESPIRATORY DISORDER
     Dosage: UNK
     Dates: start: 20090326, end: 20090403
  13. GLUCOR [Concomitant]
     Active Substance: ACARBOSE
     Indication: TYPE 2 DIABETES MELLITUS
     Dosage: UNK
     Route: 048
     Dates: start: 20040507, end: 20090407
  14. INEXIUM [Concomitant]
     Active Substance: ESOMEPRAZOLE
     Dosage: UNK
     Dates: start: 20090407
  15. ESTRADIOL. [Concomitant]
     Active Substance: ESTRADIOL
     Indication: BLOOD FOLLICLE STIMULATING HORMONE DECREASED
     Dosage: UNK
     Dates: start: 2006, end: 20090326
  16. PEGVISOMANT [Suspect]
     Active Substance: PEGVISOMANT
     Indication: ACROMEGALY
     Dosage: 10 MG, DAILY
     Route: 058
     Dates: start: 20061207, end: 20090326
  17. TAHOR [Concomitant]
     Active Substance: ATORVASTATIN CALCIUM
     Indication: LIPID METABOLISM DISORDER
     Dosage: UNK
     Dates: start: 20090407
  18. HYDROCORTISONE. [Concomitant]
     Active Substance: HYDROCORTISONE
     Indication: BLOOD CORTICOTROPHIN DECREASED
     Dosage: UNK
     Dates: start: 19900613
  19. MOTILIUM [Concomitant]
     Active Substance: DOMPERIDONE
     Dosage: UNK
     Dates: start: 20090407, end: 200905
  20. LOVENOX [Concomitant]
     Active Substance: ENOXAPARIN SODIUM
     Dosage: UNK
     Dates: start: 20090326, end: 200909
  21. TRIMETAZIDINE [Concomitant]
     Active Substance: TRIMETAZIDINE
     Dosage: UNK
  22. ROCEPHINE [Concomitant]
     Active Substance: CEFTRIAXONE SODIUM
     Dosage: UNK
     Dates: start: 20090326, end: 200905
  23. PEGVISOMANT [Suspect]
     Active Substance: PEGVISOMANT
     Dosage: 10 MG, DAILY
     Route: 058
     Dates: start: 20090408, end: 20090509
  24. PROGESTERONE. [Concomitant]
     Active Substance: PROGESTERONE
     Indication: BLOOD FOLLICLE STIMULATING HORMONE DECREASED
     Dosage: UNK
     Dates: start: 2006, end: 20090326

REACTIONS (2)
  - Cholecystitis acute [Recovered/Resolved]
  - Septic shock [Recovered/Resolved]

NARRATIVE: CASE EVENT DATE: 20090326
